FAERS Safety Report 6808843-1 (Version None)
Quarter: 2010Q2

REPORT INFORMATION
  Report Type: 
  Country: None (occurrence: None)
  Receive Date: 20100630
  Receipt Date: 20091014
  Transmission Date: 20101027
  Serious: No
  Sender: FDA-Public Use
  Company Number: US-PFIZER INC-2009252227

PATIENT
  Sex: Female

DRUGS (2)
  1. MEDROL [Suspect]
     Indication: LOCAL SWELLING
     Dates: start: 20090731
  2. MEDROL [Suspect]
     Indication: INFLAMMATION

REACTIONS (3)
  - MUSCLE DISORDER [None]
  - MYALGIA [None]
  - TOOTH DISORDER [None]
